FAERS Safety Report 5566562-6 (Version None)
Quarter: 2007Q4

REPORT INFORMATION
  Report Type: 
  Country: None (occurrence: None)
  Receive Date: 20071219
  Receipt Date: 20071210
  Transmission Date: 20080405
  Serious: Yes (Hospitalization)
  Sender: FDA-Public Use
  Company Number: FR-ROCHE-536279

PATIENT
  Age: 65 Year
  Sex: Female

DRUGS (1)
  1. ROFERON-A [Suspect]
     Dosage: FORM: INJECTABLE SOLUTION
     Route: 058
     Dates: start: 20000101, end: 20010215

REACTIONS (1)
  - TENDON RUPTURE [None]
